FAERS Safety Report 19238543 (Version 2)
Quarter: 2021Q2

REPORT INFORMATION
  Report Type: Spontaneous
  Country: JP (occurrence: JP)
  Receive Date: 20210510
  Receipt Date: 20210607
  Transmission Date: 20210717
  Serious: Yes (Hospitalization)
  Sender: FDA-Public Use
  Company Number: JP-MYLANLABS-2021M1027005

PATIENT
  Weight: 5.28 kg

DRUGS (7)
  1. OCTREOTIDE. [Suspect]
     Active Substance: OCTREOTIDE
     Indication: ASCITES
     Dosage: 100 MICROGRAM/KILOGRAM, QD
     Route: 065
  2. PREDNISOLONE. [Suspect]
     Active Substance: PREDNISOLONE
     Indication: CONGENITAL CHYLOTHORAX
     Route: 065
  3. OCTREOTIDE. [Suspect]
     Active Substance: OCTREOTIDE
     Indication: CONGENITAL CHYLOTHORAX
     Dosage: 50 MICROGRAM/KILOGRAM, QD
     Route: 065
  4. OCTREOTIDE. [Suspect]
     Active Substance: OCTREOTIDE
     Dosage: 200 MICROGRAM/KILOGRAM, QD
     Route: 065
  5. PREDNISOLONE. [Suspect]
     Active Substance: PREDNISOLONE
     Indication: ASCITES
  6. MIDODRINE [Suspect]
     Active Substance: MIDODRINE
     Indication: CONGENITAL CHYLOTHORAX
     Dosage: 0.5 GRAM, QD
     Route: 048
  7. MIDODRINE [Suspect]
     Active Substance: MIDODRINE
     Indication: ASCITES
     Dosage: 1 GRAM, QD
     Route: 048

REACTIONS (2)
  - Drug ineffective for unapproved indication [Unknown]
  - Off label use [Unknown]
